FAERS Safety Report 9067521 (Version 1)
Quarter: 2013Q1

REPORT INFORMATION
  Report Type: Spontaneous
  Country: DE (occurrence: DE)
  Receive Date: 20130214
  Receipt Date: 20130214
  Transmission Date: 20140127
  Serious: Yes (Hospitalization)
  Sender: FDA-Public Use
  Company Number: DE-ELI_LILLY_AND_COMPANY-DE201302002951

PATIENT
  Sex: Female

DRUGS (9)
  1. BYETTA [Suspect]
     Indication: TYPE 2 DIABETES MELLITUS
     Dosage: 10 UG, BID
     Route: 058
     Dates: start: 2009
  2. VALSARTAN [Concomitant]
     Dosage: 40 MG, QD
  3. L-THYROXIN [Concomitant]
     Dosage: 150 UG, QD
  4. PANTOZOL [Concomitant]
     Dosage: UNK, BID
  5. ASS [Concomitant]
     Dosage: 100 MG, UNK
  6. PLAVIX [Concomitant]
     Dosage: 75 MG, QD
  7. XIPAMID [Concomitant]
     Dosage: 20 MG, QD
  8. BISOHEXAL [Concomitant]
     Dosage: 5 MG, QD
  9. ACC                                /00082801/ [Concomitant]
     Dosage: UNK, BID

REACTIONS (2)
  - Gastroenteritis [Not Recovered/Not Resolved]
  - Haemorrhage [Not Recovered/Not Resolved]
